FAERS Safety Report 26142595 (Version 1)
Quarter: 2025Q4

REPORT INFORMATION
  Report Type: Spontaneous
  Country: US (occurrence: US)
  Receive Date: 20251210
  Receipt Date: 20251210
  Transmission Date: 20260118
  Serious: Yes (Death)
  Sender: ALEXION PHARMACEUTICALS
  Company Number: US-AstraZeneca-CH-00989654A

PATIENT
  Age: 48 Year
  Sex: Female

DRUGS (2)
  1. ECULIZUMAB [Suspect]
     Active Substance: ECULIZUMAB
     Indication: Thrombotic microangiopathy
     Dosage: UNK
  2. ECULIZUMAB [Suspect]
     Active Substance: ECULIZUMAB
     Indication: Systemic scleroderma

REACTIONS (1)
  - Bacteraemia [Fatal]
